FAERS Safety Report 7265598-7 (Version None)
Quarter: 2011Q1

REPORT INFORMATION
  Report Type: 
  Country: None (occurrence: None)
  Receive Date: 20110131
  Receipt Date: 20101227
  Transmission Date: 20110831
  Serious: Yes (Hospitalization, Other)
  Sender: FDA-Public Use
  Company Number: US-BAYER-201031802NA

PATIENT
  Sex: Female
  Weight: 70.295 kg

DRUGS (5)
  1. UNASYN IM/IV [Concomitant]
     Route: 042
  2. CALCIUM [CALCIUM] [Concomitant]
     Dosage: 1500 MG, UNK
  3. MULTI-VITAMINS [Concomitant]
  4. YASMIN [Suspect]
     Indication: PRODUCT USED FOR UNKNOWN INDICATION
     Route: 048
     Dates: start: 20090501
  5. YAZ [Suspect]
     Indication: CONTRACEPTION
     Dosage: UNK
     Route: 048
     Dates: start: 20090529, end: 20100101

REACTIONS (7)
  - ABDOMINAL PAIN [None]
  - CHOLECYSTITIS ACUTE [None]
  - ABDOMINAL PAIN UPPER [None]
  - METRORRHAGIA [None]
  - VOMITING [None]
  - CHOLELITHIASIS [None]
  - GALLBLADDER CHOLESTEROLOSIS [None]
